FAERS Safety Report 9720677 (Version 2)
Quarter: 2014Q1

REPORT INFORMATION
  Report Type: Report from Study
  Country: US (occurrence: US)
  Receive Date: 20131129
  Receipt Date: 20140130
  Transmission Date: 20141002
  Serious: Yes (Hospitalization)
  Sender: FDA-Public Use
  Company Number: PHEH2013US024781

PATIENT
  Age: 64 Year
  Sex: Female

DRUGS (12)
  1. TOBI [Suspect]
     Indication: BRONCHIECTASIS
     Dosage: 300 MG, Q12H (300 MG/5 ML, Q12H)
     Route: 055
     Dates: start: 20130814
  2. METOPROLOL [Concomitant]
     Dosage: UNK UKN, UNK
  3. SINGULAIR [Concomitant]
     Dosage: UNK UKN, UNK
  4. PLAQUENIL [Concomitant]
     Dosage: UNK UKN, UNK
  5. ASPIRIN [Concomitant]
     Dosage: UNK UKN, UNK
  6. PREDNISONE [Concomitant]
     Dosage: UNK UKN, UNK
  7. AZITHROMYCIN [Concomitant]
     Dosage: UNK UKN, UNK
  8. SPIRIVA [Concomitant]
     Dosage: UNK UKN, UNK
  9. SYMBICORT [Concomitant]
     Dosage: UNK UKN, UNK
  10. PRO-AIR [Concomitant]
     Dosage: UNK UKN, UNK
  11. CALTRATE +D [Concomitant]
     Dosage: UNK UKN, UNK
  12. MULTI-VIT [Concomitant]
     Dosage: UNK UKN, UNK

REACTIONS (3)
  - Gastrointestinal disorder [Recovering/Resolving]
  - Respiratory disorder [Recovering/Resolving]
  - Hepatic enzyme increased [Unknown]
